FAERS Safety Report 4295000-9 (Version None)
Quarter: 2004Q1

REPORT INFORMATION
  Report Type: 
  Country: None (occurrence: None)
  Receive Date: 20040216
  Receipt Date: 20040106
  Transmission Date: 20041129
  Serious: Yes (Other)
  Sender: FDA-Public Use
  Company Number: 200410239GDDC

PATIENT
  Age: 57 Year
  Sex: Male

DRUGS (3)
  1. RIFATER [Suspect]
     Indication: TUBERCULOSIS
     Dosage: DOSE: 5 TABLETS
     Route: 048
     Dates: start: 20030901, end: 20031101
  2. RIFAMPIN [Suspect]
     Indication: TUBERCULOSIS
     Dosage: DOSE: 3 TABLETS
     Route: 048
     Dates: start: 20031101
  3. PYRIDOXINE [Concomitant]
     Route: 048
     Dates: start: 20030901

REACTIONS (2)
  - OEDEMA PERIPHERAL [None]
  - RASH SCALY [None]
